FAERS Safety Report 10934729 (Version 5)
Quarter: 2016Q1

REPORT INFORMATION
  Report Type: Spontaneous
  Country: US (occurrence: US)
  Receive Date: 20150320
  Receipt Date: 20160210
  Transmission Date: 20160525
  Serious: Yes (Death, Other)
  Sender: FDA-Public Use
  Company Number: US-ELI_LILLY_AND_COMPANY-US201503004511

PATIENT
  Age: 52 Year
  Sex: Male

DRUGS (5)
  1. FLEXERIL [Concomitant]
     Active Substance: CYCLOBENZAPRINE HYDROCHLORIDE
  2. CYMBALTA [Suspect]
     Active Substance: DULOXETINE HYDROCHLORIDE
     Indication: FIBROMYALGIA
     Dosage: 60 MG, QD
     Route: 048
     Dates: start: 201401, end: 20140226
  3. AMITRIPTYLINE [Concomitant]
     Active Substance: AMITRIPTYLINE
  4. CYMBALTA [Suspect]
     Active Substance: DULOXETINE HYDROCHLORIDE
     Indication: DEPRESSION
     Dosage: 60 MG, QD
     Route: 048
     Dates: start: 20121002, end: 20131014
  5. TEMAZEPAM. [Concomitant]
     Active Substance: TEMAZEPAM
     Indication: INSOMNIA
     Dosage: UNK

REACTIONS (14)
  - Heart rate increased [Unknown]
  - Completed suicide [Fatal]
  - Drug withdrawal syndrome [Unknown]
  - Insomnia [Unknown]
  - Dysphemia [Unknown]
  - Depression [Unknown]
  - Mood swings [Unknown]
  - Dry mouth [Unknown]
  - Compulsive shopping [Unknown]
  - Thinking abnormal [Unknown]
  - Irritability [Unknown]
  - Disturbance in attention [Unknown]
  - Hyponatraemia [Unknown]
  - Anxiety [Unknown]

NARRATIVE: CASE EVENT DATE: 20140307
